FAERS Safety Report 8138699-9 (Version None)
Quarter: 2012Q1

REPORT INFORMATION
  Report Type: 
  Country: None (occurrence: None)
  Receive Date: 20120213
  Receipt Date: 20120206
  Transmission Date: 20120608
  Serious: Yes (Hospitalization)
  Sender: FDA-Public Use
  Company Number: CIP10002285

PATIENT
  Age: 83 Year
  Sex: Female

DRUGS (1)
  1. RISEDRONATE SODIUM [Suspect]
     Indication: OSTEOPOROSIS PROPHYLAXIS
     Dosage: 17.5 MG ONCE A WEEK, ORAL
     Route: 048
     Dates: end: 20100801

REACTIONS (5)
  - FEMUR FRACTURE [None]
  - FEMORAL NECK FRACTURE [None]
  - FALL [None]
  - LOW TURNOVER OSTEOPATHY [None]
  - BONE CALLUS EXCESSIVE [None]
